FAERS Safety Report 9826027 (Version 2)
Quarter: 2014Q1

REPORT INFORMATION
  Report Type: Spontaneous
  Country: US (occurrence: US)
  Receive Date: 20140117
  Receipt Date: 20140210
  Transmission Date: 20141002
  Serious: Yes (Other)
  Sender: FDA-Public Use
  Company Number: US-ASTELLAS-2014US000381

PATIENT
  Age: 71 Year
  Sex: Male

DRUGS (2)
  1. XTANDI [Suspect]
     Indication: PROSTATE CANCER
     Dosage: 160 MG, UID/QD
     Route: 048
     Dates: start: 20131211
  2. LYRICA [Suspect]
     Indication: HERPES ZOSTER
     Dosage: UNK
     Route: 065

REACTIONS (2)
  - Generalised oedema [Recovering/Resolving]
  - Arthralgia [Not Recovered/Not Resolved]
